FAERS Safety Report 9914997 (Version 2)
Quarter: 2014Q4

REPORT INFORMATION
  Report Type: Spontaneous
  Country: US (occurrence: US)
  Receive Date: 20140220
  Receipt Date: 20141007
  Transmission Date: 20150529
  Serious: Yes (Hospitalization)
  Sender: FDA-Public Use
  Company Number: PHHY2014US016355

PATIENT
  Age: 28 Year
  Sex: Male

DRUGS (4)
  1. OLANZAPINE. [Suspect]
     Active Substance: OLANZAPINE
     Dosage: 10 MG, UNK
  2. OLANZAPINE. [Suspect]
     Active Substance: OLANZAPINE
     Indication: DEPRESSED MOOD
     Dosage: 15 MG, UNK
  3. DEPAKOTE [Suspect]
     Active Substance: DIVALPROEX SODIUM
     Indication: DEPRESSED MOOD
     Dosage: 500 MG, QID
  4. LORAZEPAM. [Suspect]
     Active Substance: LORAZEPAM
     Indication: DEPRESSED MOOD
     Dosage: 0.5 MG, IN MORNING

REACTIONS (3)
  - Hyperammonaemia [Recovered/Resolved]
  - Drug effect incomplete [Unknown]
  - Carnitine deficiency [Recovered/Resolved]
